FAERS Safety Report 23471213 (Version 3)
Quarter: 2024Q2

REPORT INFORMATION
  Report Type: Spontaneous
  Country: CN (occurrence: CN)
  Receive Date: 20240202
  Receipt Date: 20240404
  Transmission Date: 20240716
  Serious: Yes (Death, Other)
  Sender: FDA-Public Use
  Company Number: CN-ELI_LILLY_AND_COMPANY-CN202306008386

PATIENT
  Age: 83 Year
  Sex: Male
  Weight: 70 kg

DRUGS (8)
  1. HUMALOG MIX50/50 [Suspect]
     Active Substance: INSULIN LISPRO
     Indication: Diabetes mellitus
     Dosage: 46 U, DAILY
     Route: 058
     Dates: start: 2022
  2. HUMALOG MIX50/50 [Suspect]
     Active Substance: INSULIN LISPRO
     Dosage: 28 U, DAILY
     Route: 058
     Dates: start: 2022
  3. HUMALOG MIX50/50 [Suspect]
     Active Substance: INSULIN LISPRO
     Dosage: 14 U, EACH MORNING
     Route: 058
     Dates: start: 2022
  4. HUMALOG MIX50/50 [Suspect]
     Active Substance: INSULIN LISPRO
     Dosage: 12 U, EACH EVENING
     Route: 058
     Dates: start: 2022
  5. HUMALOG MIX50/50 [Suspect]
     Active Substance: INSULIN LISPRO
     Dosage: 14 U, EACH MORNING
     Route: 058
     Dates: start: 2022
  6. HUMALOG MIX50/50 [Suspect]
     Active Substance: INSULIN LISPRO
     Dosage: 12 U, EACH EVENING
     Route: 058
     Dates: start: 2022
  7. METFORMIN [Concomitant]
     Active Substance: METFORMIN HYDROCHLORIDE
     Indication: Product used for unknown indication
     Dosage: UNK UNK, UNKNOWN
     Route: 065
  8. GLUCOBAY [Concomitant]
     Active Substance: ACARBOSE
     Indication: Product used for unknown indication
     Dosage: UNK UNK, UNKNOWN
     Route: 065

REACTIONS (12)
  - Myocardial infarction [Fatal]
  - Cerebral infarction [Unknown]
  - Blood glucose increased [Unknown]
  - Blood glucose increased [Unknown]
  - Weight increased [Unknown]
  - Hypertension [Unknown]
  - Visual impairment [Unknown]
  - Brain fog [Unknown]
  - Weight decreased [Unknown]
  - Feeding disorder [Unknown]
  - Product dose omission issue [Recovered/Resolved]
  - Product dose omission issue [Unknown]

NARRATIVE: CASE EVENT DATE: 20220601
